FAERS Safety Report 8072751-1 (Version None)
Quarter: 2012Q1

REPORT INFORMATION
  Report Type: 
  Country: None (occurrence: None)
  Receive Date: 20120126
  Receipt Date: 20120118
  Transmission Date: 20120608
  Serious: Yes (Other)
  Sender: FDA-Public Use
  Company Number: US-JNJFOC-20120107634

PATIENT
  Sex: Female

DRUGS (7)
  1. GABAPENTIN [Concomitant]
     Indication: RHEUMATOID ARTHRITIS
     Route: 048
  2. GABAPENTIN [Concomitant]
     Indication: FIBROMYALGIA
     Route: 048
  3. TIZANIDINE HCL [Concomitant]
     Indication: FIBROMYALGIA
     Route: 048
  4. TIZANIDINE HCL [Concomitant]
     Indication: RHEUMATOID ARTHRITIS
     Route: 048
  5. SIMPONI [Suspect]
     Indication: RHEUMATOID ARTHRITIS
     Route: 058
  6. CELEBREX [Concomitant]
     Indication: FIBROMYALGIA
     Route: 048
  7. CELEBREX [Concomitant]
     Indication: RHEUMATOID ARTHRITIS
     Route: 048

REACTIONS (5)
  - MENISCUS LESION [None]
  - LIGAMENT RUPTURE [None]
  - DEVICE FAILURE [None]
  - DRUG DOSE OMISSION [None]
  - FALL [None]
